FAERS Safety Report 14682980 (Version 4)
Quarter: 2018Q3

REPORT INFORMATION
  Report Type: Report from Study
  Country: US (occurrence: US)
  Receive Date: 20180327
  Receipt Date: 20180723
  Transmission Date: 20181010
  Serious: Yes (Hospitalization)
  Sender: FDA-Public Use
  Company Number: US-GILEAD-2018-0329037

PATIENT
  Age: 65 Year
  Sex: Female

DRUGS (2)
  1. ADCIRCA [Concomitant]
     Active Substance: TADALAFIL
  2. AMBRISENTAN [Suspect]
     Active Substance: AMBRISENTAN
     Indication: PULMONARY HYPERTENSION
     Dosage: 5 MG, QD
     Route: 065
     Dates: start: 20180222, end: 201806

REACTIONS (12)
  - Anxiety [Unknown]
  - Electrolyte imbalance [Unknown]
  - Fatigue [Unknown]
  - Product use issue [Unknown]
  - Chest discomfort [Unknown]
  - Dyspnoea [Unknown]
  - Fluid retention [Not Recovered/Not Resolved]
  - Intentional dose omission [Unknown]
  - Dyspnoea [Unknown]
  - Dehydration [Unknown]
  - Diarrhoea [Unknown]
  - Asthenia [Unknown]

NARRATIVE: CASE EVENT DATE: 20180319
